FAERS Safety Report 19675441 (Version 1)
Quarter: 2021Q3

REPORT INFORMATION
  Report Type: Spontaneous
  Country: TN (occurrence: TN)
  Receive Date: 20210809
  Receipt Date: 20210809
  Transmission Date: 20211014
  Serious: Yes (Other)
  Sender: FDA-Public Use
  Company Number: TN-LUPIN PHARMACEUTICALS INC.-2021-13758

PATIENT
  Age: 10 Year
  Sex: Male

DRUGS (7)
  1. VALPROIC ACID. [Concomitant]
     Active Substance: VALPROIC ACID
     Dosage: 30 MILLIGRAM/KILOGRAM, QD
     Route: 065
  2. CLONAZEPAM. [Concomitant]
     Active Substance: CLONAZEPAM
     Indication: IDIOPATHIC GENERALISED EPILEPSY
     Dosage: 0.06 MILLIGRAM/KILOGRAM, QD
     Route: 065
  3. VALPROIC ACID. [Concomitant]
     Active Substance: VALPROIC ACID
     Indication: IDIOPATHIC GENERALISED EPILEPSY
     Dosage: 20 MILLIGRAM/KILOGRAM, QD
     Route: 065
  4. LAMOTRIGINE. [Suspect]
     Active Substance: LAMOTRIGINE
     Dosage: 5 MILLIGRAM/KILOGRAM, QD (STARTED GRADUALLY UNTIL)
     Route: 065
  5. LAMOTRIGINE. [Suspect]
     Active Substance: LAMOTRIGINE
     Dosage: 5 MILLIGRAM/KILOGRAM, QD (STARTED GRADUALLY UNTIL )
     Route: 065
  6. LAMOTRIGINE. [Suspect]
     Active Substance: LAMOTRIGINE
     Indication: EPILEPSY
     Dosage: 9 MILLIGRAM/KILOGRAM, QD
     Route: 065
  7. LAMOTRIGINE. [Suspect]
     Active Substance: LAMOTRIGINE
     Dosage: 5 MILLIGRAM/KILOGRAM, QD
     Route: 065

REACTIONS (2)
  - Opsoclonus myoclonus [Recovered/Resolved]
  - Toxicity to various agents [Unknown]
